FAERS Safety Report 11810495 (Version 3)
Quarter: 2016Q1

REPORT INFORMATION
  Report Type: Spontaneous
  Country: US (occurrence: US)
  Receive Date: 20151208
  Receipt Date: 20160329
  Transmission Date: 20160525
  Serious: Yes (Other)
  Sender: FDA-Public Use
  Company Number: US-BAYER-2015-482308

PATIENT
  Age: 32 Year
  Sex: Female
  Weight: 76.19 kg

DRUGS (1)
  1. MIRENA [Suspect]
     Active Substance: LEVONORGESTREL
     Indication: CONTRACEPTION
     Dosage: 20 MCG/24HR, CONT
     Route: 015
     Dates: start: 20150901, end: 20151203

REACTIONS (3)
  - Uterine perforation [Recovered/Resolved]
  - Abdominal pain lower [Recovered/Resolved]
  - Medical device discomfort [Recovered/Resolved]

NARRATIVE: CASE EVENT DATE: 20151002
